FAERS Safety Report 19580370 (Version 1)
Quarter: 2021Q3

REPORT INFORMATION
  Report Type: Spontaneous
  Country: US (occurrence: US)
  Receive Date: 20210717
  Receipt Date: 20210717
  Transmission Date: 20211014
  Serious: Yes (Hospitalization)
  Sender: FDA-Public Use
  Company Number: None

PATIENT
  Age: 56 Year
  Sex: Female
  Weight: 90.5 kg

DRUGS (2)
  1. ELIQUIS [Concomitant]
     Active Substance: APIXABAN
  2. CISPLATIN. [Suspect]
     Active Substance: CISPLATIN
     Dates: end: 20210629

REACTIONS (5)
  - Vulvovaginal injury [None]
  - Vaginal haemorrhage [None]
  - Soft tissue necrosis [None]
  - Haemoglobin decreased [None]
  - Anaemia [None]

NARRATIVE: CASE EVENT DATE: 20210701
